FAERS Safety Report 21653766 (Version 1)
Quarter: 2022Q4

REPORT INFORMATION
  Report Type: Report from Study
  Country: US (occurrence: US)
  Receive Date: 20221129
  Receipt Date: 20221129
  Transmission Date: 20230113
  Serious: No
  Sender: FDA-Public Use
  Company Number: US-ABBVIE-4183141

PATIENT
  Sex: Female

DRUGS (1)
  1. SKYRIZI [Suspect]
     Active Substance: RISANKIZUMAB-RZAA
     Indication: Psoriasis
     Dosage: ONCE AT WEEK 4 , 150 MILLIGRAM
     Route: 058
     Dates: start: 20220829

REACTIONS (2)
  - General physical condition abnormal [Unknown]
  - Pruritus [Recovering/Resolving]
